FAERS Safety Report 5485611-7 (Version None)
Quarter: 2007Q4

REPORT INFORMATION
  Report Type: 
  Country: None (occurrence: None)
  Receive Date: 20071011
  Receipt Date: 20071011
  Transmission Date: 20080405
  Serious: Yes (Life-Threatening)
  Sender: FDA-Public Use
  Company Number: None

PATIENT
  Age: 31 Year
  Sex: Female
  Weight: 99.7913 kg

DRUGS (2)
  1. TRIPLE ANTIBIOTIC [Suspect]
     Indication: EXCORIATION
     Dosage: 1 PACKAGE ONCE TOP
     Route: 061
     Dates: start: 20071005, end: 20071005
  2. TRIPLE ANTIBIOTIC [Suspect]
     Indication: LOCAL ANTIBACTERIAL THERAPY
     Dosage: 1 PACKAGE ONCE TOP
     Route: 061
     Dates: start: 20071005, end: 20071005

REACTIONS (6)
  - ABDOMINAL PAIN [None]
  - ANAPHYLACTIC REACTION [None]
  - CHILLS [None]
  - OEDEMA PERIPHERAL [None]
  - TUNNEL VISION [None]
  - VOMITING [None]
